FAERS Safety Report 9837178 (Version 1)
Quarter: 2013Q4

REPORT INFORMATION
  Report Type: Spontaneous
  Country: US (occurrence: None)
  Receive Date: 20131127
  Receipt Date: 20131127
  Transmission Date: 20140711
  Serious: No
  Sender: FDA-Public Use
  Company Number: 224366

PATIENT
  Age: 71 Year
  Sex: Male

DRUGS (3)
  1. PICATO [Suspect]
     Indication: ACTINIC KERATOSIS
     Dosage: (1 D), TOPICAL
     Route: 061
     Dates: start: 20131018, end: 20131020
  2. LOTREL (COROVAL B) [Concomitant]
  3. HYDROCHLOROTHIAZIDE (HYDROCHLOEOTHIAZIDE) [Concomitant]

REACTIONS (5)
  - Application site swelling [None]
  - Application site dryness [None]
  - Application site scab [None]
  - Periorbital oedema [None]
  - Drug administered at inappropriate site [None]
